FAERS Safety Report 14333206 (Version 3)
Quarter: 2021Q3

REPORT INFORMATION
  Report Type: Spontaneous
  Country: US (occurrence: US)
  Receive Date: 20171228
  Receipt Date: 20210816
  Transmission Date: 20211014
  Serious: Yes (Disabling, Other)
  Sender: FDA-Public Use
  Company Number: US-TEVA-2017-US-840013

PATIENT
  Age: 48 Year
  Sex: Female
  Weight: 125.3 kg

DRUGS (22)
  1. DOXORUBICIN [Suspect]
     Active Substance: DOXORUBICIN
     Dosage: CYCLE 3, ONCE IN 21 DAYS
     Route: 065
     Dates: start: 20140304, end: 20140304
  2. CYCLOPHOSPHAMIDE. [Suspect]
     Active Substance: CYCLOPHOSPHAMIDE
     Dosage: ONCE IN 21DAYS
     Route: 042
     Dates: start: 20140304, end: 20140304
  3. LISINOPRIL AND HYDROCHLOROTHIAZIDE [Concomitant]
     Active Substance: HYDROCHLOROTHIAZIDE\LISINOPRIL
     Dosage: 1 DOSAGE FORMS DAILY; CONTINUING, 20?12.5MG
     Route: 048
     Dates: start: 2005
  4. ACETAMINOPHEN W/OXYCODONE [Concomitant]
     Active Substance: ACETAMINOPHEN\OXYCODONE HYDROCHLORIDE
     Dates: start: 201309
  5. DOCETAXEL SAGENT [Suspect]
     Active Substance: DOCETAXEL
     Dosage: 1 CYCLE
     Route: 042
     Dates: start: 20131107, end: 20131107
  6. CYCLOPHOSPHAMIDE. [Suspect]
     Active Substance: CYCLOPHOSPHAMIDE
     Dosage: ONCE IN 21DAYS
     Route: 042
     Dates: start: 20140121, end: 20140121
  7. CYCLOPHOSPHAMIDE. [Suspect]
     Active Substance: CYCLOPHOSPHAMIDE
     Dosage: ONCE IN 21DAYS
     Route: 042
     Dates: start: 20140211, end: 20140211
  8. AMLODIPINE BESYLATE. [Concomitant]
     Active Substance: AMLODIPINE BESYLATE
  9. PROCHLORPERAZINE. [Concomitant]
     Active Substance: PROCHLORPERAZINE
     Dates: start: 201310
  10. METHYLPREDNISOLONE DOSPAK [Concomitant]
     Dates: start: 201310
  11. CYCLOPHOSPHAMIDE. [Suspect]
     Active Substance: CYCLOPHOSPHAMIDE
     Indication: BREAST CANCER FEMALE
     Route: 042
     Dates: start: 20131107, end: 20131107
  12. DOCETAXEL SAGENT [Suspect]
     Active Substance: DOCETAXEL
     Indication: BREAST CANCER FEMALE
     Dosage: 1 CYCLE
     Route: 042
     Dates: start: 20131107, end: 20131107
  13. DOXORUBICIN [Suspect]
     Active Substance: DOXORUBICIN
     Dosage: CYCLE 2, ONCE IN 21 DAYS
     Route: 065
     Dates: start: 20140211, end: 20140211
  14. CIPROFLOXACIN. [Concomitant]
     Active Substance: CIPROFLOXACIN
     Dates: start: 201310
  15. NEULASTA [Concomitant]
     Active Substance: PEGFILGRASTIM
     Dates: start: 2013
  16. DEXAMETHASONE. [Concomitant]
     Active Substance: DEXAMETHASONE
     Dates: start: 201310
  17. DOXORUBICIN [Suspect]
     Active Substance: DOXORUBICIN
     Indication: BREAST CANCER FEMALE
     Dosage: CYCLE 1, ONCE IN 21 DAYS
     Route: 065
     Dates: start: 20140121, end: 20140121
  18. ATORVASTATIN [Concomitant]
     Active Substance: ATORVASTATIN
     Dosage: 40 MILLIGRAM DAILY; CONTINUING
     Route: 048
     Dates: start: 2013
  19. DOXYCYCLINE HYCLATE. [Concomitant]
     Active Substance: DOXYCYCLINE HYCLATE
     Dates: start: 201310
  20. DECADRON [Concomitant]
     Active Substance: DEXAMETHASONE
  21. ALOXI [Concomitant]
     Active Substance: PALONOSETRON HYDROCHLORIDE
  22. HYDROCHLOROTHIAZIDE. [Concomitant]
     Active Substance: HYDROCHLOROTHIAZIDE

REACTIONS (14)
  - Renal failure [Recovered/Resolved]
  - Madarosis [Not Recovered/Not Resolved]
  - Decreased appetite [Not Recovered/Not Resolved]
  - Cough [Recovered/Resolved]
  - Hair texture abnormal [Not Recovered/Not Resolved]
  - Fatigue [Not Recovered/Not Resolved]
  - Drug eruption [Unknown]
  - Hair colour changes [Not Recovered/Not Resolved]
  - Vomiting [Recovering/Resolving]
  - Back pain [Unknown]
  - Alopecia areata [Not Recovered/Not Resolved]
  - Constipation [Not Recovered/Not Resolved]
  - Insomnia [Recovered/Resolved]
  - Nausea [Recovered/Resolved]

NARRATIVE: CASE EVENT DATE: 201311
